FAERS Safety Report 18533342 (Version 1)
Quarter: 2020Q4

REPORT INFORMATION
  Report Type: Spontaneous
  Country: US (occurrence: US)
  Receive Date: 20201123
  Receipt Date: 20201123
  Transmission Date: 20210114
  Serious: No
  Sender: FDA-Public Use
  Company Number: US-009507513-2011USA004862

PATIENT
  Age: 70 Year
  Sex: Female
  Weight: 55.33 kg

DRUGS (7)
  1. LENVATINIB [Concomitant]
     Active Substance: LENVATINIB
  2. CARBOPLATIN. [Concomitant]
     Active Substance: CARBOPLATIN
  3. PAXIL [Concomitant]
     Active Substance: PAROXETINE HYDROCHLORIDE
  4. KEYTRUDA [Suspect]
     Active Substance: PEMBROLIZUMAB
     Indication: ENDOMETRIAL CANCER
     Dosage: 100 MG/4ML IV
     Route: 042
     Dates: start: 20201008
  5. TAMOXIFEN [Concomitant]
     Active Substance: TAMOXIFEN
  6. ASPIRIN. [Concomitant]
     Active Substance: ASPIRIN
  7. PYRIDOXINE [Concomitant]
     Active Substance: PYRIDOXINE

REACTIONS (2)
  - Hypoaesthesia [Not Recovered/Not Resolved]
  - Dysphonia [Unknown]

NARRATIVE: CASE EVENT DATE: 20201029
